FAERS Safety Report 23626802 (Version 1)
Quarter: 2024Q1

REPORT INFORMATION
  Report Type: Spontaneous
  Country: IT (occurrence: IT)
  Receive Date: 20240313
  Receipt Date: 20240313
  Transmission Date: 20240410
  Serious: Yes (Other)
  Sender: FDA-Public Use
  Company Number: None

PATIENT
  Age: 43 Year
  Sex: Female

DRUGS (2)
  1. EPIRUBICIN HYDROCHLORIDE [Suspect]
     Active Substance: EPIRUBICIN HYDROCHLORIDE
     Dosage: 120 MG (SECOND CYCLE - 2 INTRAVENOUS BOLUSES)
     Route: 040
     Dates: start: 20240227
  2. CYCLOPHOSPHAMIDE [Suspect]
     Active Substance: CYCLOPHOSPHAMIDE
     Dosage: 804 MG (SECOND CYCLE)
     Route: 042
     Dates: start: 20240227

REACTIONS (4)
  - Neurotoxicity [Recovering/Resolving]
  - Vomiting [Recovering/Resolving]
  - Nausea [Recovering/Resolving]
  - Nasal inflammation [Recovering/Resolving]

NARRATIVE: CASE EVENT DATE: 20240227
